FAERS Safety Report 6454656-2 (Version None)
Quarter: 2009Q4

REPORT INFORMATION
  Report Type: 
  Country: None (occurrence: None)
  Receive Date: 20091118
  Receipt Date: 20091103
  Transmission Date: 20100525
  Serious: Yes (Other)
  Sender: FDA-Public Use
  Company Number: 20090527

PATIENT
  Age: 12 Year
  Sex: Female

DRUGS (10)
  1. DEXAMETHASONE SODIUM PHOSPHATE [Suspect]
     Indication: ACUTE LYMPHOCYTIC LEUKAEMIA
  2. MERCAPTOPURINE [Suspect]
  3. VINCRISTINE [Suspect]
  4. METHOTREXATE [Suspect]
     Dosage: INTRATHECAL
     Route: 037
  5. CYCLOPHOSPHAMIDE [Suspect]
  6. ASPARAGINASE [Suspect]
  7. CYTARABINE [Suspect]
  8. THIOGUANINE [Suspect]
  9. METHOTREXATE [Suspect]
  10. DOXORUBICIN [Suspect]

REACTIONS (2)
  - BLOOD GROWTH HORMONE DECREASED [None]
  - INSULIN-LIKE GROWTH FACTOR DECREASED [None]
